FAERS Safety Report 18600942 (Version 1)
Quarter: 2020Q4

REPORT INFORMATION
  Report Type: Spontaneous
  Country: FR (occurrence: FR)
  Receive Date: 20201210
  Receipt Date: 20201210
  Transmission Date: 20210114
  Serious: Yes (Other)
  Sender: FDA-Public Use
  Company Number: FR-MYLANLABS-2020M1100234

PATIENT
  Age: 72 Year
  Sex: Male
  Weight: 78 kg

DRUGS (7)
  1. FELDENE [Concomitant]
     Active Substance: PIROXICAM
     Dosage: 20 MILLIGRAM, QD
     Route: 048
  2. MULTICROM [Concomitant]
     Active Substance: CROMOLYN SODIUM
     Dosage: UNK
     Route: 047
  3. AMLOR [Concomitant]
     Active Substance: AMLODIPINE BESYLATE
     Dosage: 5 MILLIGRAM, QD
     Route: 048
  4. PARACETAMOL [Concomitant]
     Active Substance: ACETAMINOPHEN
     Dosage: UNK
     Route: 048
  5. LANZOR [Concomitant]
     Active Substance: LANSOPRAZOLE
     Dosage: 30 MILLIGRAM, QD
     Route: 048
  6. CLINDAMYCIN. [Suspect]
     Active Substance: CLINDAMYCIN
     Indication: INFECTION
     Dosage: 1800 MILLIGRAM, QD
     Route: 048
     Dates: start: 20200816, end: 20200908
  7. LEVOFLOXACIN. [Suspect]
     Active Substance: LEVOFLOXACIN
     Indication: INFECTION
     Dosage: 700 MILLIGRAM, QD
     Route: 048
     Dates: start: 20200816, end: 20200908

REACTIONS (3)
  - Tendon pain [Unknown]
  - Diarrhoea [Recovered/Resolved]
  - Myalgia [Unknown]

NARRATIVE: CASE EVENT DATE: 202009
